FAERS Safety Report 19135018 (Version 1)
Quarter: 2021Q2

REPORT INFORMATION
  Report Type: Spontaneous
  Country: NL (occurrence: NL)
  Receive Date: 20210414
  Receipt Date: 20210414
  Transmission Date: 20210717
  Serious: Yes (Hospitalization)
  Sender: FDA-Public Use
  Company Number: NL-ASTRAZENECA-2021A271827

PATIENT
  Sex: Male
  Weight: 79.8 kg

DRUGS (19)
  1. CICLESONIDE [Concomitant]
     Active Substance: CICLESONIDE
     Dosage: 160 ??G/DOSE (MICROGRAM PER DOSE)
  2. MAGNESIUM HYDROXIDE. [Concomitant]
     Active Substance: MAGNESIUM HYDROXIDE
     Dosage: CHEWABLE TABLET, 724 MG (MILLIGRAM)
  3. OMEPRAZOL [Suspect]
     Active Substance: OMEPRAZOLE
     Dosage: 1X PER DAY 1 PIECE
     Route: 048
     Dates: start: 20130116, end: 20210223
  4. ALLOPURINOL. [Concomitant]
     Active Substance: ALLOPURINOL
     Dosage: 100 MG (MILLIGRAM)
  5. METOPROLOL. [Concomitant]
     Active Substance: METOPROLOL
     Dosage: REGULATED RELEASE TABLET, 200 MG (MILLIGRAM)
  6. EPLERENON [Concomitant]
     Active Substance: EPLERENONE
     Dosage: 25 MG (MILLIGRAM)
  7. ISOSORBIDEMONONITRATE [Concomitant]
     Dosage: REGULATED RELEASE TABLET, 30 MG (MILLIGRAM)
  8. NITROGLYCERINE [Concomitant]
     Active Substance: NITROGLYCERIN
     Dosage: 0,4 MG/DOSE (MILLIGRAM PER DOSE)
  9. IPRATROPIUM [Concomitant]
     Active Substance: IPRATROPIUM
     Dosage: 20 ??G/DOSE (MICROGRAM PER DOSE)
  10. LISINOPRIL. [Concomitant]
     Active Substance: LISINOPRIL
     Dosage: 10 MG (MILLIGRAM)
  11. BUMETANIDE. [Concomitant]
     Active Substance: BUMETANIDE
     Dosage: 1 MG (MILLIGRAM)
  12. METOPROLOL. [Concomitant]
     Active Substance: METOPROLOL
     Dosage: REGULATED RELEASE TABLET, 100 MG (MILLIGRAM)
  13. FAMOTIDINE. [Concomitant]
     Active Substance: FAMOTIDINE
     Dosage: 20 MG (MILLIGRAM)
  14. ROSUVASTATINE [Concomitant]
     Active Substance: ROSUVASTATIN
     Dosage: 10 MG (MILLIGRAM)
  15. ACENOCOUMAROL [Concomitant]
     Active Substance: ACENOCOUMAROL
     Dosage: 1 MG (MILLIGRAM)
  16. SALMETEROL [Concomitant]
     Active Substance: SALMETEROL
     Dosage: 25 ??G/DOSE (MICROGRAM PER DOSE)
  17. TEMAZEPAM. [Concomitant]
     Active Substance: TEMAZEPAM
     Dosage: 10 MG (MILLIGRAM)
  18. AMOXICILLINE/CLAVULAANZUUR [Concomitant]
     Active Substance: AMOXICILLIN\CLAVULANATE POTASSIUM
     Dosage: 500/125 MG (MILLIGRAM)
  19. SALBUTAMOL [Concomitant]
     Active Substance: ALBUTEROL
     Dosage: NEBULIZER, 1 MG/ML (MILLIGRAM PER MILLILITER)

REACTIONS (4)
  - Hypokalaemia [Recovered/Resolved]
  - Hypomagnesaemia [Recovered/Resolved]
  - Hypocalcaemia [Recovered/Resolved]
  - Ventricular tachycardia [Recovered/Resolved]
